FAERS Safety Report 7673872-5 (Version None)
Quarter: 2011Q3

REPORT INFORMATION
  Report Type: 
  Country: None (occurrence: None)
  Receive Date: 20110810
  Receipt Date: 20110518
  Transmission Date: 20111222
  Serious: No
  Sender: FDA-Public Use
  Company Number: US-GLAXOSMITHKLINE-A0867540A

PATIENT
  Age: 78 Year
  Sex: Female

DRUGS (2)
  1. PAXIL [Suspect]
     Indication: NERVOUSNESS
     Dosage: 20MG PER DAY
     Route: 048
     Dates: start: 20100607
  2. LISINOPRIL [Concomitant]

REACTIONS (17)
  - EYE OPERATION [None]
  - GAIT DISTURBANCE [None]
  - DIZZINESS [None]
  - WEIGHT DECREASED [None]
  - ABNORMAL DREAMS [None]
  - NASOPHARYNGITIS [None]
  - PRURITUS [None]
  - RASH [None]
  - RASH MACULAR [None]
  - TINNITUS [None]
  - INCREASED TENDENCY TO BRUISE [None]
  - MALAISE [None]
  - OROPHARYNGEAL PAIN [None]
  - SKIN EXFOLIATION [None]
  - CHILLS [None]
  - HEADACHE [None]
  - DIZZINESS POSTURAL [None]
